FAERS Safety Report 6395531-1 (Version None)
Quarter: 2009Q4

REPORT INFORMATION
  Report Type: 
  Country: None (occurrence: None)
  Receive Date: 20091009
  Receipt Date: 20091001
  Transmission Date: 20100525
  Serious: Yes (Other)
  Sender: FDA-Public Use
  Company Number: US-EISAI INC.-E3810-03194-SPO-US

PATIENT
  Age: 31 Year
  Sex: Male

DRUGS (6)
  1. ACIPHEX [Suspect]
     Indication: ULCER
     Route: 048
     Dates: start: 20090929
  2. FLAGYL [Concomitant]
     Dosage: UNKNOWN
  3. AMOXICILLIN [Concomitant]
     Dosage: UNKNOWN
  4. ERYTHROMYCIN [Concomitant]
     Dosage: UNKNOWN
  5. XANAX [Concomitant]
     Dosage: UNKNOWN
  6. METHADONE HYDROCHLORIDE [Concomitant]
     Dosage: UNKNOWN

REACTIONS (1)
  - DRUG WITHDRAWAL SYNDROME [None]
